FAERS Safety Report 25062647 (Version 1)
Quarter: 2025Q1

REPORT INFORMATION
  Report Type: Spontaneous
  Country: IL (occurrence: IL)
  Receive Date: 20250311
  Receipt Date: 20250311
  Transmission Date: 20250408
  Serious: Yes (Death, Other)
  Sender: STRIDES
  Company Number: IL-STRIDES ARCOLAB LIMITED-2025SP003056

PATIENT

DRUGS (2)
  1. AMPICILLIN TRIHYDRATE [Suspect]
     Active Substance: AMPICILLIN TRIHYDRATE
     Indication: Product used for unknown indication
     Route: 064
  2. GENTAMICIN [Suspect]
     Active Substance: GENTAMICIN
     Indication: Product used for unknown indication
     Route: 064

REACTIONS (3)
  - Hypoxic ischaemic encephalopathy neonatal [Fatal]
  - Group B streptococcus neonatal sepsis [Fatal]
  - Foetal exposure during pregnancy [Unknown]
